FAERS Safety Report 6988535-9 (Version None)
Quarter: 2010Q3

REPORT INFORMATION
  Report Type: 
  Country: None (occurrence: None)
  Receive Date: 20100916
  Receipt Date: 20100909
  Transmission Date: 20110219
  Serious: Yes (Other)
  Sender: FDA-Public Use
  Company Number: US-PFIZER INC-2010114528

PATIENT
  Sex: Female

DRUGS (2)
  1. ZITHROMAX [Suspect]
     Indication: LOWER RESPIRATORY TRACT INFECTION BACTERIAL
  2. RIFAMPIN [Concomitant]
     Dosage: UNK

REACTIONS (2)
  - LOWER RESPIRATORY TRACT INFECTION BACTERIAL [None]
  - MYCOBACTERIUM AVIUM COMPLEX INFECTION [None]
